FAERS Safety Report 14131630 (Version 2)
Quarter: 2018Q1

REPORT INFORMATION
  Report Type: Spontaneous
  Country: JP (occurrence: JP)
  Receive Date: 20171026
  Receipt Date: 20180104
  Transmission Date: 20180508
  Serious: Yes (Other)
  Sender: FDA-Public Use
  Company Number: JP-GILEAD-2017-0300971

PATIENT
  Age: 80 Year
  Sex: Male

DRUGS (2)
  1. HEPSERA [Suspect]
     Active Substance: ADEFOVIR DIPIVOXIL
     Indication: HEPATITIS B
     Dosage: UNK
     Route: 048
     Dates: start: 200803, end: 201608
  2. ZEFIX [Suspect]
     Active Substance: LAMIVUDINE
     Indication: HEPATITIS B
     Dosage: UNK
     Route: 048
     Dates: start: 2008

REACTIONS (11)
  - Blood phosphorus decreased [Unknown]
  - Femur fracture [Unknown]
  - Osteomalacia [Unknown]
  - Blood alkaline phosphatase increased [Unknown]
  - Tibia fracture [Unknown]
  - Fanconi syndrome acquired [Unknown]
  - Atypical femur fracture [Unknown]
  - Bone pain [Unknown]
  - Muscular weakness [Unknown]
  - Gait disturbance [Unknown]
  - Arthralgia [Unknown]

NARRATIVE: CASE EVENT DATE: 2012
